FAERS Safety Report 9468375 (Version 3)
Quarter: 2013Q4

REPORT INFORMATION
  Report Type: Spontaneous
  Country: US (occurrence: US)
  Receive Date: 20130821
  Receipt Date: 20131001
  Transmission Date: 20140711
  Serious: Yes (Hospitalization, Other)
  Sender: FDA-Public Use
  Company Number: US-PFIZER INC-2013240134

PATIENT
  Age: 17 Year
  Sex: Female
  Weight: 45.35 kg

DRUGS (1)
  1. ADVIL [Suspect]
     Indication: PAIN
     Dosage: UNK
     Route: 048
     Dates: start: 2003, end: 201308

REACTIONS (1)
  - Anaphylactic reaction [Recovered/Resolved]
